FAERS Safety Report 9339036 (Version 1)
Quarter: 2013Q2

REPORT INFORMATION
  Report Type: Spontaneous
  Country: US (occurrence: None)
  Receive Date: 20130606
  Receipt Date: 20130606
  Transmission Date: 20140414
  Serious: Yes (Other)
  Sender: FDA-Public Use
  Company Number: None

PATIENT
  Sex: Female
  Weight: 47.63 kg

DRUGS (1)
  1. GABAPENTIN [Suspect]
     Indication: NERVE COMPRESSION

REACTIONS (4)
  - Abdominal discomfort [None]
  - Muscle twitching [None]
  - Drug withdrawal syndrome [None]
  - Nervous system disorder [None]
